FAERS Safety Report 18950786 (Version 1)
Quarter: 2021Q1

REPORT INFORMATION
  Report Type: Spontaneous
  Country: US (occurrence: US)
  Receive Date: 20210228
  Receipt Date: 20210228
  Transmission Date: 20210420
  Serious: No
  Sender: FDA-Public Use
  Company Number: US-ROCHE-2740655

PATIENT
  Age: 68 Year
  Sex: Female

DRUGS (1)
  1. XOLAIR [Suspect]
     Active Substance: OMALIZUMAB
     Indication: PRODUCT USED FOR UNKNOWN INDICATION
     Dosage: FREQUENCY? OTHER
     Route: 058
     Dates: start: 202012

REACTIONS (2)
  - Therapeutic response shortened [Unknown]
  - No adverse event [Unknown]

NARRATIVE: CASE EVENT DATE: 20201227
